FAERS Safety Report 23615735 (Version 1)
Quarter: 2024Q1

REPORT INFORMATION
  Report Type: Report from Study
  Country: US (occurrence: US)
  Receive Date: 20240311
  Receipt Date: 20240311
  Transmission Date: 20240410
  Serious: Yes (Other)
  Sender: FDA-Public Use
  Company Number: US-HORIZON THERAPEUTICS-HZN-2023-005908

PATIENT

DRUGS (6)
  1. TEPEZZA [Suspect]
     Active Substance: TEPROTUMUMAB-TRBW
     Indication: Endocrine ophthalmopathy
     Dosage: FIRST INFUSION
     Route: 042
     Dates: start: 20230717
  2. TEPEZZA [Suspect]
     Active Substance: TEPROTUMUMAB-TRBW
     Dosage: SECOND INFUSION
     Route: 042
     Dates: start: 20230816
  3. TEPEZZA [Suspect]
     Active Substance: TEPROTUMUMAB-TRBW
     Dosage: FOURTH INFUSION
     Route: 042
     Dates: start: 20230928
  4. TEPEZZA [Suspect]
     Active Substance: TEPROTUMUMAB-TRBW
     Dosage: 5TH INFUSION
     Route: 042
     Dates: start: 20231026
  5. TEPEZZA [Suspect]
     Active Substance: TEPROTUMUMAB-TRBW
     Dosage: 7TH INFUSION
     Route: 042
     Dates: start: 20231207
  6. TEPEZZA [Suspect]
     Active Substance: TEPROTUMUMAB-TRBW
     Dosage: LAST INFUSION (8TH INFUSION)
     Route: 042
     Dates: start: 20231228

REACTIONS (16)
  - Cataract [Unknown]
  - Diabetes mellitus [Unknown]
  - Insomnia [Unknown]
  - Blood glucose fluctuation [Unknown]
  - Asthenia [Unknown]
  - Weight decreased [Unknown]
  - Blood glucose increased [Unknown]
  - Nausea [Unknown]
  - Fatigue [Unknown]
  - Alopecia [Not Recovered/Not Resolved]
  - Muscle spasms [Unknown]
  - Vision blurred [Unknown]
  - Visual field defect [Not Recovered/Not Resolved]
  - Eye disorder [Unknown]
  - Photosensitivity reaction [Unknown]
  - Inappropriate schedule of product administration [Unknown]

NARRATIVE: CASE EVENT DATE: 20230101
